FAERS Safety Report 24971318 (Version 1)
Quarter: 2025Q1

REPORT INFORMATION
  Report Type: Report from Study
  Country: US (occurrence: None)
  Receive Date: 20250214
  Receipt Date: 20250214
  Transmission Date: 20250408
  Serious: No
  Sender: ALEXION PHARMACEUTICALS
  Company Number: US-AstraZeneca-2013SE26594

PATIENT
  Age: 79 Year

DRUGS (1)
  1. NEXIUM [Suspect]
     Active Substance: ESOMEPRAZOLE MAGNESIUM
     Indication: Barrett^s oesophagus
     Dosage: 40 MILLIGRAM, BID

REACTIONS (1)
  - Hypoacusis [Unknown]
